FAERS Safety Report 4638990-4 (Version None)
Quarter: 2005Q2

REPORT INFORMATION
  Report Type: 
  Country: None (occurrence: None)
  Receive Date: 20050419
  Receipt Date: 20050418
  Transmission Date: 20051028
  Serious: Yes (Life-Threatening, Hospitalization, Disabling)
  Sender: FDA-Public Use
  Company Number: PHBS2005DO05471

PATIENT
  Age: 63 Year
  Sex: Male

DRUGS (1)
  1. FORADIL [Suspect]
     Indication: ASTHMA
     Dates: start: 20050301

REACTIONS (3)
  - ANXIETY [None]
  - DYSPNOEA [None]
  - WHEEZING [None]
